FAERS Safety Report 8517958-1 (Version None)
Quarter: 2012Q3

REPORT INFORMATION
  Report Type: 
  Country: None (occurrence: None)
  Receive Date: 20120718
  Receipt Date: 20120401
  Transmission Date: 20120928
  Serious: Yes (Death, Other)
  Sender: FDA-Public Use
  Company Number: GR-ASTELLAS-2012US006208

PATIENT
  Age: 56 Year
  Sex: Male

DRUGS (5)
  1. DOCETAXEL [Concomitant]
     Indication: PRODUCT USED FOR UNKNOWN INDICATION
     Dosage: 75 MG/M2, UNKNOWN/D
     Route: 065
  2. CISPLATIN [Concomitant]
     Indication: PRODUCT USED FOR UNKNOWN INDICATION
     Dosage: 75 MG/M2, UNKNOWN/D
     Route: 065
  3. ERLOTINIB HYDROCHLORIDE [Suspect]
     Indication: NON-SMALL CELL LUNG CANCER
     Dosage: 150 MG, UID/QD
     Route: 048
  4. BEVACIZUMAB [Suspect]
     Indication: NON-SMALL CELL LUNG CANCER
     Dosage: 15 MG/KG, EVERY 21 DAYS
     Route: 065
  5. VINORELBINE [Suspect]
     Indication: NON-SMALL CELL LUNG CANCER
     Dosage: UNK
     Route: 065

REACTIONS (4)
  - DISEASE PROGRESSION [None]
  - METASTASES TO LUNG [None]
  - METASTASES TO LIVER [None]
  - PNEUMONIA ASPIRATION [None]
